FAERS Safety Report 16547732 (Version 1)
Quarter: 2019Q3

REPORT INFORMATION
  Report Type: Spontaneous
  Country: US (occurrence: US)
  Receive Date: 20190709
  Receipt Date: 20190709
  Transmission Date: 20191004
  Serious: Yes (Hospitalization, Other)
  Sender: FDA-Public Use
  Company Number: US-ABBVIE-17P-163-2150171-00

PATIENT
  Age: 15 Year
  Sex: Male

DRUGS (1)
  1. VALPROIC ACID. [Suspect]
     Active Substance: VALPROIC ACID
     Indication: PRODUCT USED FOR UNKNOWN INDICATION
     Route: 065

REACTIONS (9)
  - Coagulopathy [Unknown]
  - Acute hepatic failure [Unknown]
  - Malaise [Unknown]
  - Transaminases increased [Unknown]
  - Jaundice [Unknown]
  - Mental status changes [Unknown]
  - Behaviour disorder [Unknown]
  - Drug-induced liver injury [Unknown]
  - Asthenia [Unknown]
